FAERS Safety Report 19204180 (Version 1)
Quarter: 2021Q2

REPORT INFORMATION
  Report Type: Spontaneous
  Country: US (occurrence: US)
  Receive Date: 20210503
  Receipt Date: 20210503
  Transmission Date: 20210717
  Serious: No
  Sender: FDA-Public Use
  Company Number: US-CIPLA LTD.-2020US03573

PATIENT

DRUGS (1)
  1. NABUMETONE. [Suspect]
     Active Substance: NABUMETONE
     Indication: PRODUCT USED FOR UNKNOWN INDICATION
     Dosage: UNK
     Route: 048

REACTIONS (5)
  - Condition aggravated [Recovering/Resolving]
  - Myalgia [Recovering/Resolving]
  - Musculoskeletal stiffness [Recovering/Resolving]
  - Movement disorder [Recovering/Resolving]
  - Product substitution issue [Unknown]
